FAERS Safety Report 21071335 (Version 1)
Quarter: 2022Q3

REPORT INFORMATION
  Report Type: Spontaneous
  Country: US (occurrence: US)
  Receive Date: 20220712
  Receipt Date: 20220712
  Transmission Date: 20221026
  Serious: No
  Sender: FDA-Public Use
  Company Number: US-GLAXOSMITHKLINE-USCH2022AMR023558

PATIENT
  Sex: Female
  Weight: 62.14 kg

DRUGS (1)
  1. ADVIL [Suspect]
     Active Substance: IBUPROFEN
     Indication: Neuralgia
     Dosage: UNK
     Dates: start: 202206

REACTIONS (2)
  - Product use in unapproved indication [Unknown]
  - Extra dose administered [Unknown]
